FAERS Safety Report 9476759 (Version 1)
Quarter: 2013Q3

REPORT INFORMATION
  Report Type: Spontaneous
  Country: US (occurrence: US)
  Receive Date: 20130826
  Receipt Date: 20130826
  Transmission Date: 20140515
  Serious: No
  Sender: FDA-Public Use
  Company Number: US-BRISTOL-MYERS SQUIBB COMPANY-18952861

PATIENT
  Age: 68 Year
  Sex: Male
  Weight: 73.47 kg

DRUGS (2)
  1. KENALOG-40 INJ [Suspect]
     Indication: PAIN
     Dates: start: 20121102
  2. LORTAB [Concomitant]
     Indication: MUSCLE RELAXANT THERAPY

REACTIONS (2)
  - Musculoskeletal pain [Unknown]
  - Injection site pain [Unknown]
